FAERS Safety Report 10584874 (Version 2)
Quarter: 2014Q4

REPORT INFORMATION
  Report Type: Spontaneous
  Country: US (occurrence: US)
  Receive Date: 20141114
  Receipt Date: 20141114
  Transmission Date: 20150529
  Serious: Yes (Hospitalization)
  Sender: FDA-Public Use
  Company Number: PHHY2014US099250

PATIENT
  Age: 54 Year
  Sex: Female

DRUGS (20)
  1. LIORESAL [Suspect]
     Active Substance: BACLOFEN
     Dosage: 350 UG, (200 MCG DURING DAY AND 150 MCG DURING NIGHT)
     Route: 037
     Dates: start: 20140625
  2. AMLODIPINE [Suspect]
     Active Substance: AMLODIPINE BESYLATE
     Indication: PRODUCT USED FOR UNKNOWN INDICATION
     Dosage: UNK UKN, UNK
     Route: 065
  3. SIMVASTATIN. [Suspect]
     Active Substance: SIMVASTATIN
     Indication: PRODUCT USED FOR UNKNOWN INDICATION
     Dosage: UNK UKN, UNK
     Route: 065
  4. CALCIUM [Suspect]
     Active Substance: CALCIUM
     Indication: PRODUCT USED FOR UNKNOWN INDICATION
     Dosage: UNK UKN, UNK
     Route: 065
  5. GABLOFEN [Suspect]
     Active Substance: BACLOFEN
     Indication: PRODUCT USED FOR UNKNOWN INDICATION
     Route: 065
  6. LIORESAL [Suspect]
     Active Substance: BACLOFEN
     Dosage: 199.99 UG PER DAY (CONCENTRATION 500MCG/ML)
     Route: 037
  7. BACLOFEN. [Suspect]
     Active Substance: BACLOFEN
     Indication: MUSCLE SPASTICITY
     Dosage: UNK UKN, UNK
     Route: 048
  8. LEVOTHYROXINE [Suspect]
     Active Substance: LEVOTHYROXINE
     Indication: PRODUCT USED FOR UNKNOWN INDICATION
     Dosage: UNK UKN, UNK
     Route: 065
  9. LIORESAL [Suspect]
     Active Substance: BACLOFEN
     Dosage: 50 UG, UNK
     Route: 037
     Dates: start: 20140521
  10. LIORESAL [Suspect]
     Active Substance: BACLOFEN
     Dosage: 206.34 UG (PER DAY)
     Route: 037
  11. ACETYLSALICYLIC ACID [Suspect]
     Active Substance: ASPIRIN
     Indication: PRODUCT USED FOR UNKNOWN INDICATION
     Dosage: UNK UKN, UNK
     Route: 065
  12. LIORESAL [Suspect]
     Active Substance: BACLOFEN
     Dosage: 150 UG, UNK
     Route: 037
     Dates: start: 20140609
  13. LIORESAL [Suspect]
     Active Substance: BACLOFEN
     Dosage: 150 UG, (PER DAY)
     Route: 037
  14. LIORESAL [Suspect]
     Active Substance: BACLOFEN
     Indication: MUSCLE SPASTICITY
     Dosage: UNK UKN, UNK
     Route: 037
  15. KLONOPIN [Suspect]
     Active Substance: CLONAZEPAM
     Indication: PRODUCT USED FOR UNKNOWN INDICATION
     Dosage: UNK UKN, UNK
     Route: 065
  16. LIORESAL [Suspect]
     Active Substance: BACLOFEN
     Dosage: 300 UG, UNK
     Route: 037
     Dates: start: 20140313
  17. BENAZEPRIL [Suspect]
     Active Substance: BENAZEPRIL\BENAZEPRIL HYDROCHLORIDE
     Indication: PRODUCT USED FOR UNKNOWN INDICATION
     Dosage: UNK UKN, UNK
     Route: 065
  18. VITAMIN D [Suspect]
     Active Substance: CHOLECALCIFEROL
     Indication: PRODUCT USED FOR UNKNOWN INDICATION
     Dosage: UNK UKN, UNK
     Route: 065
  19. LIORESAL [Suspect]
     Active Substance: BACLOFEN
     Dosage: 100 UG, UNK
     Route: 037
     Dates: start: 20140528
  20. VENLAFAXINE [Suspect]
     Active Substance: VENLAFAXINE HYDROCHLORIDE
     Indication: PRODUCT USED FOR UNKNOWN INDICATION
     Dosage: UNK UKN, UNK
     Route: 065

REACTIONS (7)
  - Dry mouth [Not Recovered/Not Resolved]
  - Therapeutic response decreased [Not Recovered/Not Resolved]
  - Hypoaesthesia [Not Recovered/Not Resolved]
  - Paraesthesia [Not Recovered/Not Resolved]
  - Burning sensation [Not Recovered/Not Resolved]
  - Feeling cold [Not Recovered/Not Resolved]
  - Disease progression [Not Recovered/Not Resolved]

NARRATIVE: CASE EVENT DATE: 20130808
